FAERS Safety Report 18724913 (Version 1)
Quarter: 2021Q1

REPORT INFORMATION
  Report Type: Spontaneous
  Country: IL (occurrence: IL)
  Receive Date: 20210111
  Receipt Date: 20210111
  Transmission Date: 20210419
  Serious: Yes (Other)
  Sender: FDA-Public Use
  Company Number: NVSC2020IL347477

PATIENT
  Age: 67 Year
  Sex: Male

DRUGS (1)
  1. NILOTINIB [Suspect]
     Active Substance: NILOTINIB
     Indication: CHRONIC MYELOID LEUKAEMIA
     Dosage: UNK
     Route: 065

REACTIONS (11)
  - Diabetes mellitus [Unknown]
  - Weight decreased [Unknown]
  - Pericardial effusion [Unknown]
  - Hypertriglyceridaemia [Unknown]
  - Hypertension [Unknown]
  - Pleural effusion [Unknown]
  - Diarrhoea [Unknown]
  - Renal failure [Unknown]
  - Transaminases increased [Unknown]
  - Albuminuria [Unknown]
  - Thrombocytopenia [Unknown]
